FAERS Safety Report 24176289 (Version 1)
Quarter: 2024Q3

REPORT INFORMATION
  Report Type: Spontaneous
  Country: DE (occurrence: DE)
  Receive Date: 20240806
  Receipt Date: 20240806
  Transmission Date: 20241016
  Serious: Yes (Other)
  Sender: SANDOZ
  Company Number: DE-SANDOZ-SDZ2018DE000014

PATIENT

DRUGS (1)
  1. SALBUHEXAL [Suspect]
     Active Substance: ALBUTEROL
     Indication: Respiratory tract infection
     Dosage: 200 OT
     Route: 065

REACTIONS (3)
  - Respiratory tract infection [Recovering/Resolving]
  - Condition aggravated [Recovering/Resolving]
  - Drug ineffective [Unknown]
